FAERS Safety Report 13689676 (Version 4)
Quarter: 2017Q3

REPORT INFORMATION
  Report Type: Spontaneous
  Country: JP (occurrence: JP)
  Receive Date: 20170626
  Receipt Date: 20170824
  Transmission Date: 20171127
  Serious: Yes (Disabling, Other)
  Sender: FDA-Public Use
  Company Number: JP-PFIZER INC-2017272089

PATIENT
  Age: 85 Year
  Sex: Male

DRUGS (14)
  1. VITAMINS NOS [Concomitant]
     Active Substance: VITAMINS
     Dosage: 5 UG, 3X/DAY
     Route: 048
  2. AVOLVE [Concomitant]
     Active Substance: DUTASTERIDE
     Dosage: 0.5 MG, 1X/DAY
     Route: 048
  3. ASTAT [Concomitant]
     Dosage: UNK
     Route: 062
  4. MYSLEE [Concomitant]
     Active Substance: ZOLPIDEM TARTRATE
     Dosage: 10 MG, 1X/DAY
     Route: 048
  5. OLMETEC [Concomitant]
     Active Substance: OLMESARTAN MEDOXOMIL
     Dosage: 20 MG, 1X/DAY
     Route: 048
  6. ETIZOLAM [Concomitant]
     Active Substance: ETIZOLAM
     Dosage: 0.5 MG, 1X/DAY
     Route: 048
  7. MOHRUS [Concomitant]
     Active Substance: KETOPROFEN
     Dosage: UNK
     Route: 062
  8. BENDAZAC [Concomitant]
     Dosage: UNK
     Route: 062
  9. ZESTAK [Concomitant]
     Dosage: UNK
     Route: 062
  10. URIEF [Concomitant]
     Active Substance: SILODOSIN
     Dosage: 4 MG, 2X/DAY
     Route: 048
  11. ANTEBATE [Concomitant]
     Active Substance: BETAMETHASONE DIPROPIONATE
     Dosage: UNK
     Route: 062
  12. LYRICA [Suspect]
     Active Substance: PREGABALIN
     Dosage: 75 MG, 2X/DAY
     Route: 048
     Dates: start: 20160304, end: 20160527
  13. ADALAT CC [Concomitant]
     Active Substance: NIFEDIPINE
     Dosage: 40 MG, 1X/DAY
     Route: 048
  14. FEBURIC [Concomitant]
     Active Substance: FEBUXOSTAT
     Dosage: 20 MG, 1X/DAY
     Route: 048

REACTIONS (2)
  - Drug interaction [Recovered/Resolved]
  - Dementia [Recovered/Resolved]

NARRATIVE: CASE EVENT DATE: 201603
